FAERS Safety Report 7074304-0 (Version None)
Quarter: 2010Q4

REPORT INFORMATION
  Report Type: 
  Country: None (occurrence: None)
  Receive Date: 20101029
  Receipt Date: 20101021
  Transmission Date: 20110411
  Serious: Yes (Death, Hospitalization)
  Sender: FDA-Public Use
  Company Number: CH-CELGENEUS-151-50794-10102131

PATIENT
  Age: 66 Year
  Sex: Female

DRUGS (1)
  1. VIDAZA [Suspect]
     Route: 058
     Dates: start: 20100920, end: 20100924

REACTIONS (4)
  - ACUTE FEBRILE NEUTROPHILIC DERMATOSIS [None]
  - GENERAL PHYSICAL HEALTH DETERIORATION [None]
  - INJECTION SITE REACTION [None]
  - SEPTIC SHOCK [None]
